APPROVED DRUG PRODUCT: CISATRACURIUM BESYLATE PRESERVATIVE FREE
Active Ingredient: CISATRACURIUM BESYLATE
Strength: EQ 10MG BASE/ML
Dosage Form/Route: INJECTABLE;INJECTION
Application: A216539 | Product #002
Applicant: HAINAN POLY PHARM CO LTD
Approved: Aug 27, 2024 | RLD: No | RS: No | Type: DISCN